FAERS Safety Report 23443931 (Version 1)
Quarter: 2024Q1

REPORT INFORMATION
  Report Type: Spontaneous
  Country: US (occurrence: US)
  Receive Date: 20240125
  Receipt Date: 20240125
  Transmission Date: 20240410
  Serious: No
  Sender: FDA-Public Use
  Company Number: US-BRISTOL-MYERS SQUIBB COMPANY-2024-013115

PATIENT
  Age: 75 Year
  Sex: Male

DRUGS (1)
  1. REVLIMID [Suspect]
     Active Substance: LENALIDOMIDE
     Indication: Stem cell donor
     Dosage: TAKE 1 CAPSULE BY MOUTH EVERY DAY IN THE EARLY MORNING (BEFORE A MEAL)
     Route: 048

REACTIONS (5)
  - Paraesthesia [Recovering/Resolving]
  - Depression [Recovering/Resolving]
  - Off label use [Unknown]
  - Constipation [Recovering/Resolving]
  - Diarrhoea [Recovering/Resolving]
